FAERS Safety Report 8093332-X (Version None)
Quarter: 2012Q1

REPORT INFORMATION
  Report Type: 
  Country: None (occurrence: None)
  Receive Date: 20120128
  Receipt Date: 20111004
  Transmission Date: 20120608
  Serious: Yes (Other)
  Sender: FDA-Public Use
  Company Number: US-ABBOTT-11P-163-0848077-00

PATIENT
  Sex: Female
  Weight: 74.91 kg

DRUGS (3)
  1. PAXIL [Concomitant]
     Indication: DEPRESSION
     Route: 048
  2. HUMIRA [Suspect]
     Route: 058
     Dates: start: 20110401, end: 20110819
  3. HUMIRA [Suspect]
     Indication: PSORIASIS
     Route: 058
     Dates: start: 20100101, end: 20110101

REACTIONS (4)
  - DRUG INEFFECTIVE [None]
  - BLOOD URINE PRESENT [None]
  - PSORIASIS [None]
  - PAIN [None]
